FAERS Safety Report 19020925 (Version 1)
Quarter: 2021Q1

REPORT INFORMATION
  Report Type: Spontaneous
  Country: LT (occurrence: LT)
  Receive Date: 20210317
  Receipt Date: 20210317
  Transmission Date: 20210420
  Serious: Yes (Other)
  Sender: FDA-Public Use
  Company Number: LT-BAYER-2021-093549

PATIENT
  Age: 90 Year

DRUGS (3)
  1. XOFIGO [Suspect]
     Active Substance: RADIUM RA-223 DICHLORIDE
     Dosage: UNK
     Dates: start: 20210301, end: 20210301
  2. XOFIGO [Suspect]
     Active Substance: RADIUM RA-223 DICHLORIDE
     Dosage: UNK
     Dates: start: 20210107, end: 20210107
  3. XOFIGO [Suspect]
     Active Substance: RADIUM RA-223 DICHLORIDE
     Dosage: UNK
     Dates: start: 20210204, end: 20210204

REACTIONS (4)
  - Incorrect dose administered [None]
  - Inappropriate schedule of product administration [None]
  - Metastases to lung [None]
  - Metastases to lymph nodes [None]

NARRATIVE: CASE EVENT DATE: 202103
